FAERS Safety Report 9885869 (Version 1)
Quarter: 2014Q1

REPORT INFORMATION
  Report Type: Spontaneous
  Country: US (occurrence: None)
  Receive Date: 20140207
  Receipt Date: 20140207
  Transmission Date: 20141002
  Serious: Yes (Hospitalization)
  Sender: FDA-Public Use
  Company Number: None

PATIENT
  Age: 68 Year
  Sex: Female

DRUGS (8)
  1. LETAIRIS [Suspect]
     Indication: PULMONARY HYPERTENSION
     Route: 048
     Dates: start: 201306, end: 201401
  2. SILDENAFIL [Concomitant]
  3. FUROSEMIDE [Concomitant]
  4. ATENOLOL [Concomitant]
  5. METFORMIN [Concomitant]
  6. LOVASTATIN [Concomitant]
  7. NOTRIPTYLINE [Concomitant]
  8. APAP/CODEINE [Concomitant]

REACTIONS (3)
  - Anaemia [None]
  - Generalised oedema [None]
  - Dyspnoea exertional [None]
